FAERS Safety Report 6435811-4 (Version None)
Quarter: 2009Q4

REPORT INFORMATION
  Report Type: 
  Country: None (occurrence: None)
  Receive Date: 20091111
  Receipt Date: 20091106
  Transmission Date: 20100525
  Serious: Yes (Other)
  Sender: FDA-Public Use
  Company Number: US-BRISTOL-MYERS SQUIBB COMPANY-14846489

PATIENT
  Age: 61 Year
  Sex: Female
  Weight: 86 kg

DRUGS (2)
  1. ABILIFY [Suspect]
     Indication: DEPRESSION
     Dosage: DOSE DECREASED TO 10 MG
  2. CYMBALTA [Concomitant]

REACTIONS (4)
  - GAIT DISTURBANCE [None]
  - INCREASED APPETITE [None]
  - MYALGIA [None]
  - SARCOIDOSIS [None]
